FAERS Safety Report 25518299 (Version 1)
Quarter: 2025Q3

REPORT INFORMATION
  Report Type: Spontaneous
  Country: EU (occurrence: EU)
  Receive Date: 20250704
  Receipt Date: 20250704
  Transmission Date: 20251020
  Serious: Yes (Hospitalization)
  Sender: RANBAXY
  Company Number: EU-AEMPS-1648958

PATIENT
  Age: 74 Year
  Sex: Female

DRUGS (2)
  1. AZITHROMYCIN [Interacting]
     Active Substance: AZITHROMYCIN
     Indication: Upper respiratory tract infection
     Dosage: 500 MILLIGRAM, DAILY
     Route: 048
     Dates: start: 20250224, end: 20250226
  2. SINTROM [Interacting]
     Active Substance: ACENOCOUMAROL
     Indication: Cardiac valve prosthesis user
     Dosage: 14 MILLIGRAM, 1/WEEK
     Route: 048
     Dates: start: 20210625, end: 20250301

REACTIONS (2)
  - Abdominal wall haematoma [Recovering/Resolving]
  - Anaemia [Recovered/Resolved]

NARRATIVE: CASE EVENT DATE: 20250301
